FAERS Safety Report 4845907-6 (Version None)
Quarter: 2005Q4

REPORT INFORMATION
  Report Type: 
  Country: None (occurrence: None)
  Receive Date: 20051129
  Receipt Date: 20050531
  Transmission Date: 20060501
  Serious: Yes (Other)
  Sender: FDA-Public Use
  Company Number: 2005BH000079

PATIENT
  Age: 60 Year
  Sex: Male

DRUGS (1)
  1. OMR-IGG-AM (OMRIX) [Suspect]
     Indication: POLYCHONDRITIS
     Dosage: 660 MG/KG; EVERY DAY; IV
     Route: 042

REACTIONS (7)
  - ACUTE MYOCARDIAL INFARCTION [None]
  - ARTERIOSCLEROSIS CORONARY ARTERY [None]
  - ASTHENIA [None]
  - ATRIOVENTRICULAR BLOCK FIRST DEGREE [None]
  - PRURITUS [None]
  - URTICARIA [None]
  - VENTRICULAR ARRHYTHMIA [None]
